FAERS Safety Report 6522092-6 (Version None)
Quarter: 2009Q4

REPORT INFORMATION
  Report Type: 
  Country: None (occurrence: None)
  Receive Date: 20091230
  Receipt Date: 20091216
  Transmission Date: 20100525
  Serious: Yes (Life-Threatening, Hospitalization)
  Sender: FDA-Public Use
  Company Number: FR-PFIZER INC-2009310756

PATIENT
  Sex: Male

DRUGS (6)
  1. ALDACTONE [Suspect]
     Dosage: 75 MG, DAILY
     Route: 048
     Dates: end: 20090919
  2. FOZITEC [Suspect]
     Dosage: 10 MG, DAILY
     Route: 048
     Dates: end: 20090919
  3. LASILIX [Concomitant]
     Dosage: 40 MG, UNK
  4. PERMIXON [Concomitant]
  5. PLAVIX [Concomitant]
  6. CARDENSIEL [Concomitant]

REACTIONS (3)
  - ARRHYTHMIA [None]
  - HYPERKALAEMIA [None]
  - RENAL FAILURE ACUTE [None]
